FAERS Safety Report 8499167-8 (Version None)
Quarter: 2012Q2

REPORT INFORMATION
  Report Type: 
  Country: None (occurrence: None)
  Receive Date: 20120627
  Receipt Date: 20120614
  Transmission Date: 20120825
  Serious: Yes (Other)
  Sender: FDA-Public Use
  Company Number: 2012AP000316

PATIENT
  Age: 47 Year
  Sex: Female

DRUGS (4)
  1. SERTRALINE HYDROCHLORIDE [Suspect]
     Indication: OBSESSIVE-COMPULSIVE DISORDER
     Dosage: 100 MG;UNKNOWN; QD 200 MG;UNKNOWN; QD
  2. CLONAZEPAM [Concomitant]
  3. ZIPRASIDONE HCL [Concomitant]
  4. VALPROATE SODIUM [Concomitant]

REACTIONS (1)
  - PLEUROTHOTONUS [None]
